FAERS Safety Report 14639382 (Version 1)
Quarter: 2018Q1

REPORT INFORMATION
  Report Type: Spontaneous
  Country: FR (occurrence: FR)
  Receive Date: 20180315
  Receipt Date: 20180315
  Transmission Date: 20180509
  Serious: Yes (Disabling, Other)
  Sender: FDA-Public Use
  Company Number: FR-MERCK KGAA-2043776

PATIENT
  Age: 53 Year
  Sex: Female

DRUGS (2)
  1. LEVOTHYROX NF [Suspect]
     Active Substance: LEVOTHYROXINE SODIUM
  2. NOVOTHYROX [Suspect]
     Active Substance: LEVOTHYROXINE SODIUM
     Indication: PRODUCT USED FOR UNKNOWN INDICATION
     Dates: start: 201703

REACTIONS (26)
  - Seizure [None]
  - Fear of death [None]
  - Amnesia [None]
  - Visual impairment [None]
  - Irritability [None]
  - Vertigo [None]
  - Weight increased [None]
  - Aggression [None]
  - Asthenia [None]
  - Product packaging issue [None]
  - Dizziness [None]
  - Headache [None]
  - Loss of consciousness [None]
  - Fatigue [None]
  - Loss of personal independence in daily activities [None]
  - Blood thyroid stimulating hormone decreased [None]
  - Dyspnoea [None]
  - Malaise [None]
  - Incorrect dose administered [None]
  - Mood swings [None]
  - Anxiety [None]
  - Decreased interest [None]
  - Sluggishness [None]
  - Palpitations [None]
  - Deafness [None]
  - Hypotonia [None]

NARRATIVE: CASE EVENT DATE: 2017
